FAERS Safety Report 5320891-X (Version None)
Quarter: 2007Q2

REPORT INFORMATION
  Report Type: 
  Country: None (occurrence: None)
  Receive Date: 20070504
  Receipt Date: 20070424
  Transmission Date: 20071010
  Serious: Yes (Other)
  Sender: FDA-Public Use
  Company Number: GXKR2007JP03431

PATIENT
  Age: 46 Year
  Sex: Male
  Weight: 65.7 kg

DRUGS (2)
  1. CARBOPLATIN [Suspect]
     Indication: SMALL CELL LUNG CANCER STAGE UNSPECIFIED
     Dosage: 540 MG ON DAY 1
  2. ETOPOSIDE [Suspect]
     Indication: SMALL CELL LUNG CANCER STAGE UNSPECIFIED
     Dosage: 160 MG ON DAY 1-3

REACTIONS (5)
  - BACTERAEMIA [None]
  - BACTERIA STOOL IDENTIFIED [None]
  - DRUG INEFFECTIVE [None]
  - HELICOBACTER INFECTION [None]
  - WHITE BLOOD CELL COUNT DECREASED [None]
